FAERS Safety Report 8018813-6 (Version None)
Quarter: 2012Q1

REPORT INFORMATION
  Report Type: 
  Country: None (occurrence: None)
  Receive Date: 20120103
  Receipt Date: 20111220
  Transmission Date: 20120608
  Serious: Yes (Hospitalization)
  Sender: FDA-Public Use
  Company Number: DE-PFIZER INC-2011309775

PATIENT
  Age: 19 Year
  Sex: Female

DRUGS (12)
  1. ETOPOSIDE [Suspect]
     Dosage: 100 MG/M2
     Route: 042
     Dates: start: 20110729
  2. PREDNISONE TAB [Suspect]
     Indication: HODGKIN'S DISEASE
     Dosage: 40 MG/M2
     Route: 048
     Dates: start: 20110705
  3. ETOPOSIDE [Suspect]
     Indication: HODGKIN'S DISEASE
     Dosage: 100 MG/M2
     Route: 042
     Dates: start: 20110705
  4. PROCARBAZINE HYDROCHLORIDE [Suspect]
     Indication: HODGKIN'S DISEASE
     Dosage: 100 MG/M2
     Route: 048
     Dates: start: 20110705
  5. PROCARBAZINE HYDROCHLORIDE [Suspect]
     Dosage: 100 MG/M2
     Dates: start: 20110729
  6. RITUXIMAB [Suspect]
     Indication: HODGKIN'S DISEASE
     Dosage: 375 MG/M2
     Route: 042
     Dates: start: 20110705
  7. RITUXIMAB [Suspect]
     Dosage: 375 MG/M2
     Dates: start: 20110729
  8. CYCLOPHOSPHAMIDE [Suspect]
     Indication: HODGKIN'S DISEASE
     Dosage: 650 MG/M2
     Route: 042
     Dates: start: 20110705
  9. DOXORUBICIN HCL [Suspect]
     Dosage: 25 MG/M2
     Dates: start: 20110729
  10. DOXORUBICIN HCL [Suspect]
     Indication: HODGKIN'S DISEASE
     Dosage: 25 MG/M2
     Route: 042
     Dates: start: 20110705
  11. PREDNISONE TAB [Suspect]
     Dosage: 40 MG/M2, UNK
     Route: 048
     Dates: start: 20110729
  12. BLEOMYCIN SULFATE [Suspect]
     Indication: HODGKIN'S DISEASE
     Dosage: 10 MG/M2
     Route: 042
     Dates: start: 20110713

REACTIONS (7)
  - PRESYNCOPE [None]
  - SEPSIS [None]
  - PYREXIA [None]
  - CHILLS [None]
  - UROSEPSIS [None]
  - IRON DEFICIENCY ANAEMIA [None]
  - FEBRILE NEUTROPENIA [None]
